FAERS Safety Report 9474260 (Version 1)
Quarter: 2013Q3

REPORT INFORMATION
  Report Type: Spontaneous
  Country: US (occurrence: US)
  Receive Date: 20130823
  Receipt Date: 20130823
  Transmission Date: 20140515
  Serious: Yes (Other)
  Sender: FDA-Public Use
  Company Number: US-BRISTOL-MYERS SQUIBB COMPANY-19200963

PATIENT
  Age: 36 Year
  Sex: Female

DRUGS (15)
  1. ABILIFY [Suspect]
     Dosage: 1DF: 10 UNITS NOS (1/2 PER DAY).
  2. TRAZODONE HCL [Suspect]
     Dosage: 1DF: 50 UNITS NOS
  3. LEXAPRO [Concomitant]
  4. XANAX [Concomitant]
  5. AMBIEN [Concomitant]
  6. ADDERALL [Concomitant]
  7. PROZAC [Concomitant]
     Dosage: 1DF: 40 UNITS NOS
  8. CYMBALTA [Concomitant]
     Dosage: 1DF: 60 UNITS NOS
  9. CELEXA [Concomitant]
     Dosage: 1DF: 40 UNITS NOS
  10. LITHIUM CARBONATE [Concomitant]
  11. DALMANE [Concomitant]
  12. LAMICTAL [Concomitant]
     Dosage: 1DF: 25 UNITS NOS
  13. PHENTERMINE [Concomitant]
     Dosage: 1DF: 37.5 UNITS NOS
  14. WELLBUTRIN [Concomitant]
  15. RITALIN [Concomitant]

REACTIONS (11)
  - Depression [Unknown]
  - Chest pain [Unknown]
  - Road traffic accident [Unknown]
  - Back injury [Unknown]
  - Flat affect [Unknown]
  - Tachyphrenia [Unknown]
  - Weight increased [Unknown]
  - Insomnia [Unknown]
  - Feeling abnormal [Unknown]
  - Disturbance in attention [Unknown]
  - Stress [Unknown]
